FAERS Safety Report 6406293-3 (Version None)
Quarter: 2009Q4

REPORT INFORMATION
  Report Type: 
  Country: None (occurrence: None)
  Receive Date: 20091019
  Receipt Date: 20091008
  Transmission Date: 20100525
  Serious: Yes (Hospitalization, Other)
  Sender: FDA-Public Use
  Company Number: PHHY2009BR43832

PATIENT
  Sex: Male
  Weight: 67 kg

DRUGS (2)
  1. SANDOSTATIN LAR [Suspect]
     Indication: PITUITARY TUMOUR
     Dosage: 20 MG, QMO
     Dates: start: 20080801
  2. SANDOSTATIN LAR [Suspect]
     Dosage: 30 MG, QMO

REACTIONS (3)
  - PITUITARY TUMOUR REMOVAL [None]
  - URINE POTASSIUM INCREASED [None]
  - URINE SODIUM INCREASED [None]
